FAERS Safety Report 12712082 (Version 1)
Quarter: 2016Q3

REPORT INFORMATION
  Report Type: Spontaneous
  Country: US (occurrence: US)
  Receive Date: 20160902
  Receipt Date: 20160902
  Transmission Date: 20161109
  Serious: No
  Sender: FDA-Public Use
  Company Number: US-BAYER-2016-171280

PATIENT
  Age: 59 Year
  Sex: Male
  Weight: 71.66 kg

DRUGS (7)
  1. OXYCODONE [Concomitant]
     Active Substance: OXYCODONE
  2. BIOTIN [Concomitant]
     Active Substance: BIOTIN
  3. ZINC [Concomitant]
     Active Substance: ZINC\ZINC CHLORIDE
  4. MORPHINE SULFATE. [Concomitant]
     Active Substance: MORPHINE SULFATE
  5. CENTRUM PLUS [Concomitant]
     Active Substance: VITAMINS
  6. OMEGA-500 [Concomitant]
  7. MIRALAX [Suspect]
     Active Substance: POLYETHYLENE GLYCOL 3350
     Indication: CONSTIPATION
     Dosage: 1 DF, ABOUT 13 YEARS AGO
     Route: 048

REACTIONS (1)
  - Product use issue [None]
